FAERS Safety Report 7265139-4 (Version None)
Quarter: 2011Q1

REPORT INFORMATION
  Report Type: 
  Country: None (occurrence: None)
  Receive Date: 20110131
  Receipt Date: 20110118
  Transmission Date: 20110831
  Serious: Yes (Other)
  Sender: FDA-Public Use
  Company Number: PHHY2011CA04599

PATIENT
  Sex: Female

DRUGS (4)
  1. SELBREX [Concomitant]
  2. HYDROCHLOROTHIAZDE TAB [Concomitant]
     Dosage: 25 MG
  3. DIOVAN HCT [Suspect]
     Dosage: 80 MG /12.5 MG
     Route: 048
  4. NESFORMAN [Concomitant]
     Dosage: 500 MG, BID

REACTIONS (1)
  - ALBUMIN URINE PRESENT [None]
